FAERS Safety Report 5492696-0 (Version None)
Quarter: 2007Q4

REPORT INFORMATION
  Report Type: 
  Country: None (occurrence: None)
  Receive Date: 20071016
  Receipt Date: 20071010
  Transmission Date: 20080405
  Serious: Yes (Other)
  Sender: FDA-Public Use
  Company Number: CHPA2007US08361

PATIENT
  Age: 54 Year
  Sex: Male
  Weight: 79.4 kg

DRUGS (2)
  1. DESENEX PRESCRIPTIONS STRENGTH ANTIFPOWER  (NCH) (MICONAZOLE NITRATE) [Suspect]
     Indication: TINEA PEDIS
     Dosage: ONCE/SINGLE, TOPICAL
     Route: 061
     Dates: start: 20070601, end: 20070601
  2. NEXIUM [Concomitant]

REACTIONS (6)
  - APPLICATION SITE DISCOLOURATION [None]
  - APPLICATION SITE ERYTHEMA [None]
  - APPLICATION SITE VESICLES [None]
  - DRUG HYPERSENSITIVITY [None]
  - HYPERHIDROSIS [None]
  - OEDEMA PERIPHERAL [None]
